FAERS Safety Report 6127013-6 (Version None)
Quarter: 2009Q1

REPORT INFORMATION
  Report Type: 
  Country: None (occurrence: None)
  Receive Date: 20090320
  Receipt Date: 20090130
  Transmission Date: 20090719
  Serious: No
  Sender: FDA-Public Use
  Company Number: US-ABBOTT-09P-163-0501155-00

PATIENT
  Sex: Female
  Weight: 79.45 kg

DRUGS (1)
  1. ERYTHROMYCIN BASE [Suspect]
     Indication: CYSTOCELE
     Route: 048

REACTIONS (3)
  - DIARRHOEA [None]
  - DYSPNOEA [None]
  - PALPITATIONS [None]
